FAERS Safety Report 9413975 (Version 1)
Quarter: 2013Q3

REPORT INFORMATION
  Report Type: Report from Study
  Country: DE (occurrence: DE)
  Receive Date: 20130723
  Receipt Date: 20130723
  Transmission Date: 20140515
  Serious: Yes (Hospitalization, Other)
  Sender: FDA-Public Use
  Company Number: DE-ROCHE-1251059

PATIENT
  Age: 78 Year
  Sex: Female
  Weight: 70 kg

DRUGS (9)
  1. BEVACIZUMAB [Suspect]
     Indication: COLORECTAL CANCER METASTATIC
     Route: 042
     Dates: start: 20130415
  2. IRINOTECAN [Suspect]
     Indication: COLORECTAL CANCER METASTATIC
     Route: 042
     Dates: start: 20130415
  3. 5-FU [Suspect]
     Indication: COLORECTAL CANCER METASTATIC
     Route: 042
     Dates: start: 20130415
  4. FOLINIC ACID [Suspect]
     Indication: COLORECTAL CANCER METASTATIC
     Route: 042
     Dates: start: 20130415
  5. CIPROBAY (GERMANY) [Suspect]
     Indication: PLEURISY
     Route: 048
     Dates: start: 20130611, end: 20130701
  6. DYTIDE H [Concomitant]
     Indication: HYPERTENSION
     Route: 048
  7. L-THYROXINE [Concomitant]
     Indication: HYPERTHYROIDISM
     Route: 048
  8. METOHEXAL (GERMANY) [Concomitant]
     Indication: HYPERTENSION
     Route: 048
  9. PANTOZOL (GERMANY) [Concomitant]
     Indication: GASTRIC PH DECREASED
     Route: 048
     Dates: start: 20130702, end: 20130705

REACTIONS (7)
  - Diarrhoea [Recovered/Resolved]
  - Renal failure [Recovered/Resolved]
  - Dehydration [Recovered/Resolved]
  - Anaemia of malignant disease [Not Recovered/Not Resolved]
  - Pleurisy [Unknown]
  - Dyspnoea [Unknown]
  - C-reactive protein increased [Unknown]
